FAERS Safety Report 19137646 (Version 1)
Quarter: 2021Q2

REPORT INFORMATION
  Report Type: Spontaneous
  Country: US (occurrence: US)
  Receive Date: 20210415
  Receipt Date: 20210415
  Transmission Date: 20210717
  Serious: No
  Sender: FDA-Public Use
  Company Number: US-009507513-2103USA004977

PATIENT
  Age: 44 Year
  Sex: Male

DRUGS (1)
  1. JANUVIA [Suspect]
     Active Substance: SITAGLIPTIN PHOSPHATE
     Indication: CYSTIC FIBROSIS RELATED DIABETES
     Dosage: 100 MILLIGRAM, DAILY
     Route: 048

REACTIONS (1)
  - Off label use [Unknown]
